FAERS Safety Report 6986214-5 (Version None)
Quarter: 2010Q3

REPORT INFORMATION
  Report Type: 
  Country: None (occurrence: None)
  Receive Date: 20100915
  Receipt Date: 20090615
  Transmission Date: 20110219
  Serious: No
  Sender: FDA-Public Use
  Company Number: US-WYE-H09767809

PATIENT
  Sex: Male
  Weight: 74 kg

DRUGS (5)
  1. PRISTIQ [Suspect]
     Indication: DEPRESSION
     Dosage: 50 MG (FREQUENCY UNSPECIFIED)
     Route: 048
     Dates: start: 20090501
  2. XANAX [Concomitant]
  3. ASTELIN [Concomitant]
  4. LIPITOR [Concomitant]
  5. PROTONIX [Concomitant]

REACTIONS (3)
  - CONSTIPATION [None]
  - FATIGUE [None]
  - SEXUAL DYSFUNCTION [None]
